FAERS Safety Report 5281977-1 (Version None)
Quarter: 2007Q1

REPORT INFORMATION
  Report Type: 
  Country: None (occurrence: None)
  Receive Date: 20070326
  Receipt Date: 20070301
  Transmission Date: 20070707
  Serious: Yes (Other)
  Sender: FDA-Public Use
  Company Number: GXKR2007NL02660

PATIENT
  Age: 51 Year
  Sex: Female

DRUGS (2)
  1. LISINOPRIL SANDOZ (NGX)(LISINOPRIL) TABLET, 20MG [Suspect]
     Dosage: 20 MG, QD, ORAL
     Route: 048
     Dates: start: 20070123, end: 20070221
  2. HYDROCHLOROTHIAZIDE [Suspect]
     Dosage: 25 MG, QD, ORAL
     Route: 048
     Dates: start: 20070207

REACTIONS (2)
  - ANGIOEDEMA [None]
  - SWELLING FACE [None]
